FAERS Safety Report 6925047-2 (Version None)
Quarter: 2010Q3

REPORT INFORMATION
  Report Type: 
  Country: None (occurrence: None)
  Receive Date: 20100816
  Receipt Date: 20100807
  Transmission Date: 20110219
  Serious: Yes (Hospitalization, Other)
  Sender: FDA-Public Use
  Company Number: US-PFIZER INC-2010099739

PATIENT
  Sex: Female

DRUGS (1)
  1. CHANTIX [Suspect]
     Dosage: UNK
     Dates: start: 20070901

REACTIONS (5)
  - ANXIETY [None]
  - MAJOR DEPRESSION [None]
  - MENTAL DISORDER [None]
  - PANIC DISORDER [None]
  - SUICIDE ATTEMPT [None]
